FAERS Safety Report 9980518 (Version 4)
Quarter: 2014Q3

REPORT INFORMATION
  Report Type: Report from Study
  Country: US (occurrence: US)
  Receive Date: 20140307
  Receipt Date: 20140807
  Transmission Date: 20150326
  Serious: Yes (Other)
  Sender: FDA-Public Use
  Company Number: US-BIOGENIDEC-2014BI020059

PATIENT
  Age: 42 Year
  Sex: Female

DRUGS (1)
  1. TYSABRI [Suspect]
     Active Substance: NATALIZUMAB
     Indication: MULTIPLE SCLEROSIS
     Route: 042
     Dates: start: 20120928, end: 20140124

REACTIONS (10)
  - Muscular weakness [Not Recovered/Not Resolved]
  - Feeling abnormal [Unknown]
  - Hepatic cirrhosis [Unknown]
  - Multiple sclerosis [Unknown]
  - Memory impairment [Not Recovered/Not Resolved]
  - Adverse drug reaction [Unknown]
  - Amnesia [Not Recovered/Not Resolved]
  - Ammonia increased [Not Recovered/Not Resolved]
  - Confusional state [Not Recovered/Not Resolved]
  - Gallbladder disorder [Unknown]

NARRATIVE: CASE EVENT DATE: 201401
